FAERS Safety Report 4447629-2 (Version None)
Quarter: 2004Q3

REPORT INFORMATION
  Report Type: 
  Country: None (occurrence: None)
  Receive Date: 20040823
  Receipt Date: 20040715
  Transmission Date: 20050211
  Serious: No
  Sender: FDA-Public Use
  Company Number: PHEH2004US07646

PATIENT

DRUGS (1)
  1. ZELNORM [Suspect]
     Dosage: 6 MG ORAL
     Route: 048

REACTIONS (1)
  - FEELING ABNORMAL [None]
